FAERS Safety Report 6915241-9 (Version None)
Quarter: 2010Q3

REPORT INFORMATION
  Report Type: 
  Country: None (occurrence: None)
  Receive Date: 20100806
  Receipt Date: 20100806
  Transmission Date: 20110219
  Serious: Yes (Other)
  Sender: FDA-Public Use
  Company Number: None

PATIENT
  Age: 35 Year
  Sex: Female
  Weight: 68.0396 kg

DRUGS (2)
  1. STELARA [Suspect]
     Indication: PSORIASIS
     Dosage: 1 SYRING -45 MG- 1ST INJECTION SQ
     Route: 058
     Dates: start: 20100803, end: 20100804
  2. STELARA [Suspect]
     Indication: PSORIATIC ARTHROPATHY
     Dosage: 1 SYRING -45 MG- 1ST INJECTION SQ
     Route: 058
     Dates: start: 20100803, end: 20100804

REACTIONS (14)
  - EAR PAIN [None]
  - EATING DISORDER [None]
  - EYE SWELLING [None]
  - FEELING ABNORMAL [None]
  - HYPERSENSITIVITY [None]
  - INSOMNIA [None]
  - JAW DISORDER [None]
  - LYMPHADENOPATHY [None]
  - MASTICATION DISORDER [None]
  - PAIN [None]
  - SPEECH DISORDER [None]
  - SWELLING [None]
  - SWOLLEN TONGUE [None]
  - TRISMUS [None]
